FAERS Safety Report 6077987-7 (Version None)
Quarter: 2009Q1

REPORT INFORMATION
  Report Type: 
  Country: None (occurrence: None)
  Receive Date: 20090213
  Receipt Date: 20090203
  Transmission Date: 20090719
  Serious: Yes (Hospitalization)
  Sender: FDA-Public Use
  Company Number: FR-ELI_LILLY_AND_COMPANY-FR200902000391

PATIENT
  Sex: Male

DRUGS (10)
  1. HUMULIN N [Suspect]
     Indication: TYPE 2 DIABETES MELLITUS
     Dosage: 28 IU, EACH MORNING
     Route: 058
     Dates: start: 20060101
  2. HUMULIN N [Suspect]
     Dosage: 22 IU, EACH EVENING
     Route: 058
     Dates: start: 20060101
  3. HUMULIN N [Suspect]
     Dosage: UNK,  REDUCED DOSE
     Route: 065
     Dates: start: 20080101
  4. PLAVIX [Concomitant]
     Dosage: DAILY (1/D)
     Route: 065
  5. ACEBUTOLOL [Concomitant]
     Dosage: DAILY (1/D)
     Route: 065
  6. FLUDEX [Concomitant]
     Dosage: 1.5 MG, DAILY (1/D)
     Route: 048
  7. PRAVASTATIN [Concomitant]
     Dosage: DAILY (1/D)
     Route: 065
  8. FUROSEMIDE [Concomitant]
     Dosage: 0.5 DSGF, DAILY (1/D)
     Route: 065
  9. GINKGO BILOBA EXTRACT [Concomitant]
     Dosage: DAILY (1/D)
     Route: 065
  10. OMEPRAZOLE [Concomitant]
     Dosage: DAILY (1/D)
     Route: 065

REACTIONS (5)
  - COMA [None]
  - EATING DISORDER [None]
  - HYPERGLYCAEMIA [None]
  - HYPOGLYCAEMIA [None]
  - WEIGHT DECREASED [None]
